FAERS Safety Report 4561663-3 (Version None)
Quarter: 2005Q1

REPORT INFORMATION
  Report Type: 
  Country: None (occurrence: None)
  Receive Date: 20050124
  Receipt Date: 20050110
  Transmission Date: 20050727
  Serious: Yes (Other)
  Sender: FDA-Public Use
  Company Number: 2005009908

PATIENT
  Age: 75 Year
  Sex: Female
  Weight: 44.9061 kg

DRUGS (5)
  1. TIKOSYN [Suspect]
     Indication: HEART RATE ABNORMAL
     Dosage: 250 MCG (125 MCG, 2 IN 1D), ORAL
     Route: 048
     Dates: start: 20040101
  2. OLMESARTAN MEDOXOMIL (OLMESARTAN MEDOXOMIL) [Concomitant]
  3. DIGOXIN [Concomitant]
  4. ASPIRIN [Concomitant]
  5. DICYCLOVERINE (DICYCLOVERINE) [Concomitant]

REACTIONS (3)
  - CARDIAC VALVE DISEASE [None]
  - MEDICATION ERROR [None]
  - NEOPLASM [None]
